FAERS Safety Report 20624206 (Version 1)
Quarter: 2022Q1

REPORT INFORMATION
  Report Type: Spontaneous
  Country: US (occurrence: US)
  Receive Date: 20220322
  Receipt Date: 20220322
  Transmission Date: 20220423
  Serious: No
  Sender: FDA-Public Use
  Company Number: US-SA-SAC20220317001105

PATIENT
  Age: 38 Year
  Sex: Female

DRUGS (1)
  1. DUPIXENT [Suspect]
     Active Substance: DUPILUMAB
     Indication: Dermatitis atopic
     Dosage: UNK
     Route: 058
     Dates: start: 20200630

REACTIONS (4)
  - Bone pain [Not Recovered/Not Resolved]
  - Insomnia [Not Recovered/Not Resolved]
  - Emotional distress [Not Recovered/Not Resolved]
  - Arthralgia [Not Recovered/Not Resolved]
